FAERS Safety Report 7307275-X (Version None)
Quarter: 2011Q1

REPORT INFORMATION
  Report Type: 
  Country: None (occurrence: None)
  Receive Date: 20110223
  Receipt Date: 20110216
  Transmission Date: 20110831
  Serious: No
  Sender: FDA-Public Use
  Company Number: US-PFIZER INC-2011016857

PATIENT
  Sex: Female
  Weight: 67.12 kg

DRUGS (7)
  1. PROMETRIUM [Concomitant]
     Indication: HOT FLUSH
     Dosage: UNK
  2. CHOLESTYRAMINE RESIN [Concomitant]
     Indication: DIARRHOEA
     Dosage: UNK
  3. ADVAIR [Concomitant]
     Indication: ASTHMA
     Dosage: UNK
  4. OMEPRAZOLE [Concomitant]
     Indication: HIATUS HERNIA
     Dosage: UNK
  5. ACETYLSALICYLIC ACID [Concomitant]
     Dosage: UNK
  6. TOVIAZ [Suspect]
     Indication: HYPERTONIC BLADDER
     Dosage: 4 MG, DAILY
     Route: 048
     Dates: start: 20110110
  7. VIVELLE-DOT [Concomitant]
     Indication: HOT FLUSH
     Dosage: UNK

REACTIONS (2)
  - DRY MOUTH [None]
  - URINARY INCONTINENCE [None]
